FAERS Safety Report 7099466-0 (Version None)
Quarter: 2010Q4

REPORT INFORMATION
  Report Type: 
  Country: None (occurrence: None)
  Receive Date: 20101105
  Receipt Date: 20101026
  Transmission Date: 20110411
  Serious: Yes (Other)
  Sender: FDA-Public Use
  Company Number: TUK2010A00292

PATIENT
  Age: 83 Year
  Sex: Male

DRUGS (14)
  1. ACTOS [Suspect]
     Indication: DIABETES MELLITUS
     Dosage: 15 MG (15 MG,1 IN 1 D) ORAL
     Route: 048
     Dates: start: 20100917
  2. ASPIRIN [Concomitant]
  3. FUROSEMIDE [Concomitant]
  4. GLIMEPIRIDE [Concomitant]
  5. METFORMIN HCL [Concomitant]
  6. PREDNISOLONE [Concomitant]
  7. QUININE SULFATE (QUININE SULFATE) [Concomitant]
  8. RANITIDINE [Concomitant]
  9. SALBUTAMOL (SALBUTAMOL) [Concomitant]
  10. SIMVASTATIN [Concomitant]
  11. SYMBICORT [Concomitant]
  12. THEOPHYLLINE [Concomitant]
  13. VALSARTAN [Concomitant]
  14. ROSIGLITAZONE [Concomitant]

REACTIONS (1)
  - RASH [None]
